FAERS Safety Report 4980779-0 (Version None)
Quarter: 2006Q2

REPORT INFORMATION
  Report Type: 
  Country: None (occurrence: None)
  Receive Date: 20060424
  Receipt Date: 20051114
  Transmission Date: 20061013
  Serious: Yes (Hospitalization)
  Sender: FDA-Public Use
  Company Number: US-MERCK-0511USA02636

PATIENT
  Age: 49 Year
  Sex: Female
  Weight: 114 kg

DRUGS (11)
  1. VIOXX [Suspect]
     Indication: ARTHRITIS
     Route: 048
     Dates: start: 20010101, end: 20040930
  2. ATENOLOL [Concomitant]
     Route: 065
  3. TYLENOL W/ CODEINE NO. 3 [Concomitant]
     Route: 065
  4. PREMPRO [Concomitant]
     Route: 065
     Dates: end: 20020717
  5. ZOLOFT [Concomitant]
     Route: 065
  6. HYDRODIURIL [Concomitant]
     Route: 048
  7. MAGNESIUM OXIDE [Concomitant]
     Route: 065
  8. BENTYL [Concomitant]
     Route: 065
  9. AMITRIPTYLIN [Concomitant]
     Route: 065
  10. [THERAPY UNSPECIFIED] [Concomitant]
     Indication: SINUS DISORDER
     Route: 065
  11. ASPIRIN [Concomitant]
     Route: 065
     Dates: end: 20020717

REACTIONS (6)
  - BREAST DISORDER FEMALE [None]
  - COLONIC POLYP [None]
  - DEPRESSION [None]
  - DIARRHOEA [None]
  - DIVERTICULITIS [None]
  - PULMONARY EMBOLISM [None]
